FAERS Safety Report 6387683-4 (Version None)
Quarter: 2009Q4

REPORT INFORMATION
  Report Type: 
  Country: None (occurrence: None)
  Receive Date: 20091005
  Receipt Date: 20090924
  Transmission Date: 20100525
  Serious: Yes (Other)
  Sender: FDA-Public Use
  Company Number: US-AMGEN-QUU366253

PATIENT
  Sex: Male

DRUGS (1)
  1. ENBREL [Suspect]
     Indication: RHEUMATOID ARTHRITIS
     Route: 058

REACTIONS (7)
  - AURICULAR SWELLING [None]
  - GASTROENTERITIS VIRAL [None]
  - HERPES ZOSTER [None]
  - LIP SWELLING [None]
  - OEDEMA PERIPHERAL [None]
  - RASH [None]
  - RHINORRHOEA [None]
